FAERS Safety Report 4846523-2 (Version None)
Quarter: 2005Q4

REPORT INFORMATION
  Report Type: 
  Country: None (occurrence: None)
  Receive Date: 20051202
  Receipt Date: 20051118
  Transmission Date: 20060501
  Serious: Yes (Hospitalization, Other)
  Sender: FDA-Public Use
  Company Number: KII-2005-0019846

PATIENT
  Age: 44 Year
  Sex: Male

DRUGS (3)
  1. MORPHINE SULFATE [Suspect]
     Dosage: ORAL
     Route: 048
  2. ANTIHISTAMINES FOR SYSTEMIC USE [Suspect]
     Dosage: ORAL
     Route: 048
  3. BENZODIAZEPINE DERIVATIVES [Suspect]
     Dosage: ORAL
     Route: 048

REACTIONS (2)
  - COMA [None]
  - SOMNOLENCE [None]
